FAERS Safety Report 9213654 (Version 1)
Quarter: 2013Q2

REPORT INFORMATION
  Report Type: Spontaneous
  Country: US (occurrence: US)
  Receive Date: 20130405
  Receipt Date: 20130405
  Transmission Date: 20140414
  Serious: Yes (Other)
  Sender: FDA-Public Use
  Company Number: US-PFIZER INC-2013105856

PATIENT
  Sex: Female

DRUGS (5)
  1. ZOLOFT [Suspect]
     Indication: DEPRESSION
     Dosage: UNK
     Route: 048
  2. ZOLOFT [Suspect]
     Dosage: 200 MG, UNK
     Route: 048
  3. ZOLOFT [Suspect]
     Dosage: 50 MG, 2X/DAY
     Route: 048
  4. ZOLOFT [Suspect]
     Dosage: UNK
     Route: 048
     Dates: end: 2012
  5. ZOLOFT [Suspect]
     Dosage: UNK

REACTIONS (16)
  - Withdrawal syndrome [Not Recovered/Not Resolved]
  - Cardiac disorder [Not Recovered/Not Resolved]
  - Suicidal ideation [Unknown]
  - Loss of employment [Unknown]
  - Depressed mood [Unknown]
  - Drug dependence [Unknown]
  - Dyspnoea [Not Recovered/Not Resolved]
  - Chest pain [Not Recovered/Not Resolved]
  - Feeling cold [Not Recovered/Not Resolved]
  - Tremor [Not Recovered/Not Resolved]
  - Butterfly rash [Unknown]
  - Feeling abnormal [Unknown]
  - Peripheral coldness [Unknown]
  - Sensory disturbance [Unknown]
  - Feeling hot [Unknown]
  - Temperature intolerance [Unknown]
